FAERS Safety Report 20722504 (Version 7)
Quarter: 2022Q2

REPORT INFORMATION
  Report Type: Report from Study
  Country: US (occurrence: US)
  Receive Date: 20220418
  Receipt Date: 20220527
  Transmission Date: 20220721
  Serious: No
  Sender: FDA-Public Use
  Company Number: US-NOVARTISTESTPH-NVSC2022US086686

PATIENT
  Sex: Male
  Weight: 90.249 kg

DRUGS (4)
  1. TREPROSTINIL [Suspect]
     Active Substance: TREPROSTINIL
     Indication: Pulmonary arterial hypertension
     Dosage: 24.8 NG/KG/MIN, CONT
     Route: 058
     Dates: start: 20220315
  2. TREPROSTINIL [Suspect]
     Active Substance: TREPROSTINIL
     Dosage: 31.8 NG/KG/MIN, CONT
     Route: 058
     Dates: end: 202204
  3. REMODULIN [Suspect]
     Active Substance: TREPROSTINIL
     Indication: Product used for unknown indication
     Dosage: 0.038 ML/HR (1 HOUR)
     Route: 058
  4. SILDENAFIL CITRATE [Concomitant]
     Active Substance: SILDENAFIL CITRATE
     Indication: Product used for unknown indication
     Dosage: UNK
     Route: 065

REACTIONS (17)
  - Obsessive-compulsive disorder [Unknown]
  - Illness [Unknown]
  - Nasopharyngitis [Unknown]
  - Oxygen saturation decreased [Unknown]
  - Somnolence [Unknown]
  - Fluid retention [Unknown]
  - Polyuria [Unknown]
  - Asthenia [Unknown]
  - Dizziness [Unknown]
  - Decreased appetite [Unknown]
  - Headache [Unknown]
  - Fatigue [Unknown]
  - Blood pressure systolic decreased [Unknown]
  - Nausea [Unknown]
  - Hypotension [Unknown]
  - Malaise [Unknown]
  - Drug ineffective [Unknown]
